FAERS Safety Report 9964890 (Version 1)
Quarter: 2014Q1

REPORT INFORMATION
  Report Type: Spontaneous
  Country: US (occurrence: US)
  Receive Date: 20140305
  Receipt Date: 20140305
  Transmission Date: 20141002
  Serious: No
  Sender: FDA-Public Use
  Company Number: US-AMGEN-USASP2014006707

PATIENT
  Age: 65 Year
  Sex: Male

DRUGS (2)
  1. ENBREL [Suspect]
     Indication: RHEUMATOID ARTHRITIS
     Dosage: 50 MG, QWK
     Route: 065
     Dates: start: 20071115
  2. HUMIRA [Suspect]
     Indication: PRODUCT USED FOR UNKNOWN INDICATION
     Dosage: UNK
     Route: 065

REACTIONS (7)
  - Influenza like illness [Recovered/Resolved]
  - Decreased appetite [Recovered/Resolved]
  - Local swelling [Recovered/Resolved]
  - Joint swelling [Recovered/Resolved]
  - Weight decreased [Recovered/Resolved]
  - Condition aggravated [Recovered/Resolved]
  - Drug ineffective [Recovered/Resolved]
